FAERS Safety Report 24013981 (Version 1)
Quarter: 2024Q2

REPORT INFORMATION
  Report Type: Report from Study
  Country: CA (occurrence: CA)
  Receive Date: 20240626
  Receipt Date: 20240626
  Transmission Date: 20240716
  Serious: Yes (Other)
  Sender: FDA-Public Use
  Company Number: CA-ABBVIE-5809506

PATIENT
  Sex: Female

DRUGS (1)
  1. SKYRIZI [Suspect]
     Active Substance: RISANKIZUMAB-RZAA
     Indication: Crohn^s disease
     Route: 058
     Dates: start: 20230322

REACTIONS (9)
  - Vaginal fistula [Unknown]
  - Anal fistula [Unknown]
  - Anal erythema [Unknown]
  - Skin abrasion [Unknown]
  - Anal haemorrhage [Unknown]
  - Hernia pain [Unknown]
  - Vaginal haemorrhage [Unknown]
  - Vulvovaginal erythema [Unknown]
  - Vulvovaginal injury [Unknown]
